FAERS Safety Report 12238951 (Version 1)
Quarter: 2016Q2

REPORT INFORMATION
  Report Type: Spontaneous
  Country: US (occurrence: US)
  Receive Date: 20160405
  Receipt Date: 20160405
  Transmission Date: 20160815
  Serious: No
  Sender: FDA-Public Use
  Company Number: US-PFIZER INC-2016153926

PATIENT
  Age: 53 Year
  Sex: Female

DRUGS (3)
  1. PREDNISONE. [Suspect]
     Active Substance: PREDNISONE
  2. ACTONEL [Suspect]
     Active Substance: RISEDRONATE SODIUM
  3. CORTISONE ACETATE. [Suspect]
     Active Substance: CORTISONE ACETATE

REACTIONS (1)
  - Drug hypersensitivity [Not Recovered/Not Resolved]
